FAERS Safety Report 9435081 (Version 3)
Quarter: 2014Q3

REPORT INFORMATION
  Report Type: Spontaneous
  Country: US (occurrence: US)
  Receive Date: 20130801
  Receipt Date: 20140722
  Transmission Date: 20150326
  Serious: Yes (Other)
  Sender: FDA-Public Use
  Company Number: US-009507513-1307USA017089

PATIENT
  Sex: Female
  Weight: 63.49 kg

DRUGS (2)
  1. INDERAL [Concomitant]
     Active Substance: PROPRANOLOL HYDROCHLORIDE
     Indication: MIGRAINE
     Dosage: 80 MG, QD
     Route: 048
     Dates: start: 200902, end: 2010
  2. NUVARING [Suspect]
     Active Substance: ETHINYL ESTRADIOL\ETONOGESTREL
     Indication: CONTRACEPTION
     Dosage: UNK
     Route: 067
     Dates: start: 200706, end: 20090926

REACTIONS (10)
  - Chest pain [Recovering/Resolving]
  - Asthma [Unknown]
  - Dyspnoea [Unknown]
  - Pulmonary embolism [Recovered/Resolved]
  - Anxiety [Unknown]
  - Nephrolithiasis [Unknown]
  - Cough [Unknown]
  - Blood potassium decreased [Unknown]
  - Depression [Unknown]
  - Insomnia [Unknown]

NARRATIVE: CASE EVENT DATE: 20090923
